FAERS Safety Report 12163062 (Version 1)
Quarter: 2016Q1

REPORT INFORMATION
  Report Type: Spontaneous
  Country: US (occurrence: US)
  Receive Date: 20160309
  Receipt Date: 20160309
  Transmission Date: 20160526
  Serious: No
  Sender: FDA-Public Use
  Company Number: US-ROCHE-1534015

PATIENT
  Age: 15 Year
  Sex: Male

DRUGS (6)
  1. SINGULAIR [Concomitant]
     Active Substance: MONTELUKAST SODIUM
     Indication: URTICARIA
     Dosage: TAB AT NIGHT
     Route: 048
  2. XOLAIR [Suspect]
     Active Substance: OMALIZUMAB
     Indication: URTICARIA
     Route: 058
     Dates: start: 201410
  3. ALLEGRA [Concomitant]
     Active Substance: FEXOFENADINE HYDROCHLORIDE
     Indication: URTICARIA
     Dosage: TAKENS 2 TABLETS MORNING AND 2 TABLETS IN NIGNT.
     Route: 048
  4. XOLAIR [Suspect]
     Active Substance: OMALIZUMAB
     Indication: URTICARIA
     Dosage: START DATE: 07/OCT/2014 OR 11/OCT/2014, FOR 4 MONTHS?MOST RECENT DOSE ON 09/JAN/2015
     Route: 058
  5. ZANTAC [Concomitant]
     Active Substance: RANITIDINE HYDROCHLORIDE
     Indication: URTICARIA
     Dosage: 1 TABLET IN MORNING AND   1 TABLET AT NIGHT
     Route: 048
  6. ZYRTEC [Concomitant]
     Active Substance: CETIRIZINE HYDROCHLORIDE
     Indication: URTICARIA
     Dosage: 2 TABLETS MORNING AND 2 TABLETS IN NIGNT
     Route: 048

REACTIONS (5)
  - Appetite disorder [Unknown]
  - Pruritus [Not Recovered/Not Resolved]
  - Lip swelling [Recovered/Resolved]
  - Disturbance in attention [Unknown]
  - Urticaria [Not Recovered/Not Resolved]

NARRATIVE: CASE EVENT DATE: 201411
